FAERS Safety Report 8981278 (Version 5)
Quarter: 2013Q1

REPORT INFORMATION
  Report Type: Spontaneous
  Country: GB (occurrence: GB)
  Receive Date: 20121221
  Receipt Date: 20130314
  Transmission Date: 20140127
  Serious: Yes (Death, Hospitalization, Other)
  Sender: FDA-Public Use
  Company Number: GB-ABBOTT-12P-167-1022300-00

PATIENT
  Age: 58 Year
  Sex: Male
  Weight: 70 kg

DRUGS (19)
  1. KALETRA TABLETS [Suspect]
     Indication: HIV INFECTION
     Route: 048
     Dates: start: 20121019
  2. NORVIR [Suspect]
     Indication: HIV INFECTION
     Dates: start: 20120816, end: 20120917
  3. CLARITHROMYCIN [Suspect]
     Indication: PRODUCT USED FOR UNKNOWN INDICATION
     Dates: start: 20121011
  4. KIVEXA [Suspect]
     Indication: HIV INFECTION
     Dosage: WITH KALETRA
     Dates: start: 20121109
  5. DARUNAVIR [Interacting]
     Indication: HIV INFECTION
     Dosage: 800MG PER DAY
     Dates: start: 20120816, end: 20120917
  6. RALTEGRAVIR [Interacting]
     Indication: HIV INFECTION
     Dates: start: 20120816, end: 20120917
  7. SEPTRIN [Suspect]
     Indication: PRODUCT USED FOR UNKNOWN INDICATION
     Dates: start: 20120803, end: 20120830
  8. ABACAVIR [Suspect]
     Indication: HIV INFECTION
     Dosage: 600MG PER DAY
     Route: 048
     Dates: start: 20120816, end: 20120917
  9. DAPSONE [Suspect]
     Indication: PRODUCT USED FOR UNKNOWN INDICATION
     Dates: start: 20120830, end: 20120910
  10. NIFEDIPINE [Concomitant]
     Indication: PRODUCT USED FOR UNKNOWN INDICATION
     Dosage: 10MG PER DAY
     Dates: start: 20120628
  11. ACICLOVIR [Concomitant]
     Indication: PRODUCT USED FOR UNKNOWN INDICATION
     Dates: start: 20121011
  12. AZITHROMYCIN [Concomitant]
     Indication: PRODUCT USED FOR UNKNOWN INDICATION
  13. ATORVASTATIN [Concomitant]
     Indication: PRODUCT USED FOR UNKNOWN INDICATION
     Dosage: 10MG PER DAY
     Dates: start: 20120925
  14. FLUCONAZOLE [Concomitant]
     Indication: PRODUCT USED FOR UNKNOWN INDICATION
     Dosage: 50MG DAILY
     Dates: start: 20121011
  15. BISOPROLOL [Concomitant]
     Indication: PRODUCT USED FOR UNKNOWN INDICATION
  16. RANITIDINE [Concomitant]
     Indication: PRODUCT USED FOR UNKNOWN INDICATION
     Dosage: 300MG PER DAY
  17. PIRITON [Concomitant]
     Indication: PRODUCT USED FOR UNKNOWN INDICATION
  18. CHLORPHENIRAMINE MALEATE [Concomitant]
     Indication: PRODUCT USED FOR UNKNOWN INDICATION
  19. PREDNISOLONE [Concomitant]
     Indication: PRODUCT USED FOR UNKNOWN INDICATION
     Dosage: REDUCED FROM 50MG

REACTIONS (22)
  - Toxic epidermal necrolysis [Fatal]
  - Drug reaction with eosinophilia and systemic symptoms [Fatal]
  - HIV associated nephropathy [Unknown]
  - Renal impairment [Unknown]
  - Pruritus generalised [Unknown]
  - Nausea [Unknown]
  - Diarrhoea [Unknown]
  - Oedema [Unknown]
  - Induration [Unknown]
  - Hypotension [Unknown]
  - Tachycardia [Unknown]
  - Liver disorder [Unknown]
  - White blood cell count increased [Unknown]
  - Drug interaction [Unknown]
  - Coronary artery disease [Unknown]
  - Thrombocytopenia [Unknown]
  - Malaise [Unknown]
  - Asthenia [Unknown]
  - Metabolic acidosis [Unknown]
  - Abdominal pain [Unknown]
  - C-reactive protein increased [Unknown]
  - Thrombocytopenia [Unknown]
